FAERS Safety Report 9735776 (Version 1)
Quarter: 2013Q4

REPORT INFORMATION
  Report Type: Spontaneous
  Country: US (occurrence: US)
  Receive Date: 20131206
  Receipt Date: 20131206
  Transmission Date: 20140711
  Serious: No
  Sender: FDA-Public Use
  Company Number: US-GILEAD-2009-0023088

PATIENT
  Sex: Female
  Weight: 56.7 kg

DRUGS (8)
  1. LETAIRIS [Suspect]
     Indication: PULMONARY ARTERIAL HYPERTENSION
     Route: 048
     Dates: start: 20090427
  2. REMODULIN [Concomitant]
  3. WARFARIN [Concomitant]
  4. LASIX [Concomitant]
  5. BL CALCIUM [Concomitant]
  6. VITAMIN B-100 [Concomitant]
  7. MAGNESIUM [Concomitant]
  8. BENADRYL [Concomitant]

REACTIONS (1)
  - Nasal congestion [Unknown]
